FAERS Safety Report 6733650-8 (Version None)
Quarter: 2010Q2

REPORT INFORMATION
  Report Type: 
  Country: None (occurrence: None)
  Receive Date: 20100520
  Receipt Date: 20100512
  Transmission Date: 20101027
  Serious: Yes (Life-Threatening, Hospitalization)
  Sender: FDA-Public Use
  Company Number: ES-SANOFI-AVENTIS-2010SA027551

PATIENT
  Age: 61 Year
  Sex: Male

DRUGS (6)
  1. DESMOPRESSIN ACETATE [Suspect]
     Indication: URINARY INCONTINENCE
     Dosage: DOSE:0.1 MILLIGRAM(S)/MILLILITRE
     Route: 045
     Dates: start: 20080701, end: 20081017
  2. CITALOPRAM HYDROBROMIDE [Interacting]
     Indication: DRUG USE FOR UNKNOWN INDICATION
     Route: 048
     Dates: start: 20000401, end: 20081017
  3. LOSARTAN POTASSIUM [Concomitant]
     Indication: HYPERTENSION
     Route: 048
     Dates: end: 20081024
  4. METFORMIN HYDROCHLORIDE [Concomitant]
     Indication: DIABETES MELLITUS
     Route: 048
     Dates: end: 20081017
  5. SIMVASTATIN [Concomitant]
     Route: 048
     Dates: end: 20081024
  6. CLOPIDOGREL [Concomitant]
     Indication: CARDIOVASCULAR EVENT PROPHYLAXIS
     Route: 048
     Dates: end: 20081017

REACTIONS (3)
  - DRUG INTERACTION [None]
  - HYPONATRAEMIA [None]
  - STATUS EPILEPTICUS [None]
